FAERS Safety Report 7424662-X (Version None)
Quarter: 2011Q2

REPORT INFORMATION
  Report Type: 
  Country: None (occurrence: None)
  Receive Date: 20110419
  Receipt Date: 20110202
  Transmission Date: 20111010
  Serious: Yes (Hospitalization, Other)
  Sender: FDA-Public Use
  Company Number: US-BAYER-201021928NA

PATIENT
  Age: 42 Year
  Sex: Female
  Weight: 100 kg

DRUGS (3)
  1. SYNTHROID [Concomitant]
     Dosage: 0.175 MG, QD
  2. YAZ [Suspect]
     Indication: PRODUCT USED FOR UNKNOWN INDICATION
     Route: 048
     Dates: start: 20060801, end: 20080709
  3. METOPROLOL SUCCINATE [Concomitant]
     Dosage: 50 MG, QD

REACTIONS (6)
  - GALLBLADDER DISORDER [None]
  - CHOLECYSTITIS CHRONIC [None]
  - PORTAL VEIN THROMBOSIS [None]
  - DEEP VEIN THROMBOSIS [None]
  - SPLENIC VEIN THROMBOSIS [None]
  - MESENTERIC VEIN THROMBOSIS [None]
